FAERS Safety Report 25354589 (Version 1)
Quarter: 2025Q2

REPORT INFORMATION
  Report Type: Report from Study
  Country: US (occurrence: US)
  Receive Date: 20250524
  Receipt Date: 20250524
  Transmission Date: 20250717
  Serious: Yes (Hospitalization, Other)
  Sender: ABBVIE
  Company Number: US-ABBVIE-6287270

PATIENT
  Sex: Male

DRUGS (3)
  1. BOTOX [Suspect]
     Active Substance: ONABOTULINUMTOXINA
     Indication: Maternal exposure timing unspecified
     Route: 064
     Dates: start: 2016, end: 2016
  2. REYVOW [Suspect]
     Active Substance: LASMIDITAN
     Indication: Maternal exposure timing unspecified
     Route: 064
     Dates: start: 2021, end: 202407
  3. ELETRIPTAN [Suspect]
     Active Substance: ELETRIPTAN
     Indication: Maternal exposure timing unspecified
     Route: 064
     Dates: start: 2021

REACTIONS (3)
  - Blood glucose decreased [Recovered/Resolved]
  - Temperature regulation disorder [Recovered/Resolved]
  - Foetal exposure during pregnancy [Unknown]

NARRATIVE: CASE EVENT DATE: 20250503
